FAERS Safety Report 26185520 (Version 1)
Quarter: 2025Q4

REPORT INFORMATION
  Report Type: Spontaneous
  Country: US (occurrence: US)
  Receive Date: 20251222
  Receipt Date: 20251222
  Transmission Date: 20260118
  Serious: No
  Sender: UPSHER SMITH LABORATORIES
  Company Number: US-UPSHER-SMITH LABORATORIES, LLC-20250901265

PATIENT
  Age: 77 Year
  Sex: Male

DRUGS (1)
  1. BRIMONIDINE TARTRATE AND TIMOLOL MALEATE OPHTHALMIC SOLUTION 0.2% EQ 0 [Suspect]
     Active Substance: BRIMONIDINE TARTRATE\TIMOLOL MALEATE
     Indication: Glaucoma
     Dosage: 1 DROP, BID
     Dates: start: 20250923, end: 20250924

REACTIONS (4)
  - Ocular hyperaemia [Recovering/Resolving]
  - Erythema of eyelid [Recovering/Resolving]
  - Eye pruritus [Recovering/Resolving]
  - Eye pain [Recovering/Resolving]

NARRATIVE: CASE EVENT DATE: 20250923
